FAERS Safety Report 18460548 (Version 3)
Quarter: 2020Q4

REPORT INFORMATION
  Report Type: Spontaneous
  Country: US (occurrence: US)
  Receive Date: 20201104
  Receipt Date: 20201220
  Transmission Date: 20210114
  Serious: No
  Sender: FDA-Public Use
  Company Number: US-AMGEN INC.-USASP2020176538

PATIENT
  Age: 68 Year
  Sex: Female

DRUGS (3)
  1. TYLENOL [Concomitant]
     Active Substance: ACETAMINOPHEN
     Dosage: UNK
  2. FIORINAL [ACETYLSALICYLIC ACID;BUTALBITAL;CAFFEINE;PHENACETIN] [Concomitant]
     Active Substance: ASPIRIN\BUTALBITAL\CAFFEINE\PHENACETIN
     Dosage: UNK AND (UNK THREE TO FOUR TIMES A MONTH)
  3. AIMOVIG [Suspect]
     Active Substance: ERENUMAB-AOOE
     Indication: MIGRAINE
     Dosage: 70 MILLIGRAM, Q2WK
     Route: 065

REACTIONS (11)
  - Stress [Not Recovered/Not Resolved]
  - Injection site bruising [Not Recovered/Not Resolved]
  - Inappropriate schedule of product administration [Unknown]
  - Wrong technique in product usage process [Unknown]
  - Injection site swelling [Recovering/Resolving]
  - Dizziness [Unknown]
  - Device difficult to use [Unknown]
  - Injection site haemorrhage [Unknown]
  - Therapeutic product effect incomplete [Unknown]
  - Increased tendency to bruise [Not Recovered/Not Resolved]
  - Anxiety [Not Recovered/Not Resolved]

NARRATIVE: CASE EVENT DATE: 20201028
